FAERS Safety Report 13453230 (Version 1)
Quarter: 2017Q2

REPORT INFORMATION
  Report Type: Spontaneous
  Country: US (occurrence: US)
  Receive Date: 20170418
  Receipt Date: 20170418
  Transmission Date: 20170830
  Serious: No
  Sender: FDA-Public Use
  Company Number: US-ALLERGAN-1659201US

PATIENT
  Sex: Female

DRUGS (5)
  1. LUMIGAN [Suspect]
     Active Substance: BIMATOPROST
     Indication: INTRAOCULAR PRESSURE INCREASED
     Dosage: 2 GTT, QHS
     Route: 047
  2. DIOVAN [Concomitant]
     Active Substance: VALSARTAN
     Indication: HYPERTENSION
     Dosage: UNK
     Route: 048
  3. LUTEIN [Concomitant]
     Active Substance: LUTEIN
     Indication: SUPPLEMENTATION THERAPY
     Dosage: UNK
  4. TIMOLOL MALEATE. [Concomitant]
     Active Substance: TIMOLOL MALEATE
     Indication: INTRAOCULAR PRESSURE INCREASED
     Dosage: UNK
     Route: 047
     Dates: end: 20160602
  5. TEKTURNA [Concomitant]
     Active Substance: ALISKIREN HEMIFUMARATE
     Dosage: UNK

REACTIONS (1)
  - Intraocular pressure increased [Unknown]
